FAERS Safety Report 24567387 (Version 1)
Quarter: 2024Q4

REPORT INFORMATION
  Report Type: Report from Study
  Country: CA (occurrence: CA)
  Receive Date: 20241030
  Receipt Date: 20241030
  Transmission Date: 20250115
  Serious: Yes (Other)
  Sender: ALEXION PHARMACEUTICALS
  Company Number: CA-AstraZeneca-CH-00733372A

PATIENT

DRUGS (20)
  1. TEZEPELUMAB [Suspect]
     Active Substance: TEZEPELUMAB
     Indication: Asthma
     Dosage: 210 MILLIGRAM
  2. TEZEPELUMAB [Suspect]
     Active Substance: TEZEPELUMAB
     Dosage: 210 MILLIGRAM
  3. TEZEPELUMAB [Suspect]
     Active Substance: TEZEPELUMAB
     Dosage: 210 MILLIGRAM
  4. TEZEPELUMAB [Suspect]
     Active Substance: TEZEPELUMAB
     Dosage: 210 MILLIGRAM
  5. BREO ELLIPTA [Concomitant]
     Active Substance: FLUTICASONE FUROATE\VILANTEROL TRIFENATATE
     Route: 065
  6. BREO ELLIPTA [Concomitant]
     Active Substance: FLUTICASONE FUROATE\VILANTEROL TRIFENATATE
  7. BREO ELLIPTA [Concomitant]
     Active Substance: FLUTICASONE FUROATE\VILANTEROL TRIFENATATE
     Route: 065
  8. BREO ELLIPTA [Concomitant]
     Active Substance: FLUTICASONE FUROATE\VILANTEROL TRIFENATATE
  9. GLYCOPYRROLATE\INDACATEROL\MOMETASONE FUROATE [Concomitant]
     Active Substance: GLYCOPYRROLATE\INDACATEROL\MOMETASONE FUROATE
     Route: 065
  10. GLYCOPYRROLATE\INDACATEROL\MOMETASONE FUROATE [Concomitant]
     Active Substance: GLYCOPYRROLATE\INDACATEROL\MOMETASONE FUROATE
  11. GLYCOPYRROLATE\INDACATEROL\MOMETASONE FUROATE [Concomitant]
     Active Substance: GLYCOPYRROLATE\INDACATEROL\MOMETASONE FUROATE
     Route: 065
  12. GLYCOPYRROLATE\INDACATEROL\MOMETASONE FUROATE [Concomitant]
     Active Substance: GLYCOPYRROLATE\INDACATEROL\MOMETASONE FUROATE
  13. INCRUSE ELLIPTA [Concomitant]
     Active Substance: UMECLIDINIUM BROMIDE
     Route: 065
  14. INCRUSE ELLIPTA [Concomitant]
     Active Substance: UMECLIDINIUM BROMIDE
  15. INCRUSE ELLIPTA [Concomitant]
     Active Substance: UMECLIDINIUM BROMIDE
     Route: 065
  16. INCRUSE ELLIPTA [Concomitant]
     Active Substance: UMECLIDINIUM BROMIDE
  17. VENTOLIN [Concomitant]
     Active Substance: ALBUTEROL SULFATE
     Route: 065
  18. VENTOLIN [Concomitant]
     Active Substance: ALBUTEROL SULFATE
  19. VENTOLIN [Concomitant]
     Active Substance: ALBUTEROL SULFATE
     Route: 065
  20. VENTOLIN [Concomitant]
     Active Substance: ALBUTEROL SULFATE

REACTIONS (1)
  - Lower respiratory tract infection [Unknown]
